FAERS Safety Report 19626962 (Version 1)
Quarter: 2021Q3

REPORT INFORMATION
  Report Type: Spontaneous
  Country: ES (occurrence: ES)
  Receive Date: 20210729
  Receipt Date: 20210729
  Transmission Date: 20211014
  Serious: Yes (Hospitalization, Other)
  Sender: FDA-Public Use
  Company Number: ES-TEVA-2021-ES-1938038

PATIENT
  Age: 48 Year
  Sex: Female

DRUGS (8)
  1. IMATINIB. [Interacting]
     Active Substance: IMATINIB MESYLATE
     Dosage: 300 MILLIGRAM DAILY; DISCONTINUED AT 22 DAYS
     Route: 065
  2. IMATINIB. [Suspect]
     Active Substance: IMATINIB MESYLATE
     Indication: CHRONIC MYELOID LEUKAEMIA
     Dosage: 600 MILLIGRAM DAILY;
     Route: 065
  3. IMATINIB. [Interacting]
     Active Substance: IMATINIB MESYLATE
     Dosage: 400 MILLIGRAM DAILY; TREATMENT RESTARTED DOSE DUE TO MOLECULAR RELAPSE OF CML
     Route: 065
  4. REPAGLINIDE. [Concomitant]
     Active Substance: REPAGLINIDE
     Indication: PRODUCT USED FOR UNKNOWN INDICATION
     Route: 065
  5. BISOPROLOL [Concomitant]
     Active Substance: BISOPROLOL
     Indication: PRODUCT USED FOR UNKNOWN INDICATION
     Dosage: 2.5 MILLIGRAM DAILY;
     Route: 065
  6. BEMIPARIN [Concomitant]
     Active Substance: BEMIPARIN
     Indication: PRODUCT USED FOR UNKNOWN INDICATION
     Dosage: 5000 IU (INTERNATIONAL UNIT) DAILY;
     Route: 065
  7. GEFITINIB. [Interacting]
     Active Substance: GEFITINIB
     Indication: LUNG ADENOCARCINOMA STAGE IV
     Dosage: 250 MILLIGRAM DAILY;
     Route: 065
  8. INSULIN?GLARGINE [Concomitant]
     Active Substance: INSULIN NOS
     Indication: PRODUCT USED FOR UNKNOWN INDICATION
     Dosage: 28 IU (INTERNATIONAL UNIT) DAILY;
     Route: 065

REACTIONS (2)
  - Drug interaction [Recovering/Resolving]
  - Pancreatitis acute [Recovering/Resolving]
